FAERS Safety Report 9504774 (Version 2)
Quarter: 2013Q4

REPORT INFORMATION
  Report Type: Spontaneous
  Country: US (occurrence: US)
  Receive Date: 20130906
  Receipt Date: 20131112
  Transmission Date: 20140711
  Serious: Yes (Other)
  Sender: FDA-Public Use
  Company Number: US-B.I. PHARMACEUTICALS,INC./RIDGEFIELD-2013-BI-27539BP

PATIENT
  Age: 72 Year
  Sex: Male
  Weight: 63.5 kg

DRUGS (4)
  1. PRADAXA [Suspect]
     Indication: ATRIAL FIBRILLATION
     Dates: start: 20130401, end: 20130922
  2. PRAVASTATIN [Concomitant]
     Indication: HYPERLIPIDAEMIA
     Dates: start: 20120322
  3. DIGOXIN [Concomitant]
     Indication: ATRIAL FIBRILLATION
     Dates: start: 20100709
  4. BISOPROLOL [Concomitant]
     Indication: ATRIAL FIBRILLATION
     Dates: start: 20120709

REACTIONS (3)
  - Transient ischaemic attack [Recovered/Resolved]
  - Memory impairment [Recovered/Resolved]
  - Somnambulism [Recovered/Resolved]
